FAERS Safety Report 8383918-7 (Version None)
Quarter: 2012Q2

REPORT INFORMATION
  Report Type: 
  Country: None (occurrence: None)
  Receive Date: 20120524
  Receipt Date: 20120406
  Transmission Date: 20120825
  Serious: Yes (Other)
  Sender: FDA-Public Use
  Company Number: US-ROCHE-1057308

PATIENT
  Age: 9 Year
  Sex: Male

DRUGS (1)
  1. TAMIFLU [Suspect]
     Indication: INFLUENZA
     Route: 048
     Dates: start: 20120403, end: 20120404

REACTIONS (6)
  - SPEECH DISORDER [None]
  - FEAR [None]
  - HALLUCINATION [None]
  - UNEVALUABLE EVENT [None]
  - PERSONALITY CHANGE [None]
  - CRYING [None]
